FAERS Safety Report 9358643 (Version 1)
Quarter: 2013Q2

REPORT INFORMATION
  Report Type: Spontaneous
  Country: US (occurrence: US)
  Receive Date: 20130620
  Receipt Date: 20130620
  Transmission Date: 20140414
  Serious: Yes (Death)
  Sender: FDA-Public Use
  Company Number: US-GLAXOSMITHKLINE-A1027546A

PATIENT
  Age: 53 Year
  Sex: Female

DRUGS (5)
  1. TYKERB [Suspect]
     Indication: BREAST CANCER
     Dosage: 1000MG PER DAY
     Route: 048
     Dates: start: 20130130, end: 20130417
  2. ADVAIR [Concomitant]
  3. HERCEPTIN [Concomitant]
  4. SIMVASTATIN [Concomitant]
  5. GEMZAR [Concomitant]

REACTIONS (1)
  - Death [Fatal]
